FAERS Safety Report 18319346 (Version 2)
Quarter: 2020Q4

REPORT INFORMATION
  Report Type: Spontaneous
  Country: US (occurrence: US)
  Receive Date: 20200928
  Receipt Date: 20201128
  Transmission Date: 20210113
  Serious: No
  Sender: FDA-Public Use
  Company Number: NVSC2020US261828

PATIENT
  Age: 64 Year
  Sex: Female
  Weight: 56.24 kg

DRUGS (3)
  1. LOSARTAN. [Concomitant]
     Active Substance: LOSARTAN
     Indication: PRODUCT USED FOR UNKNOWN INDICATION
     Dosage: 25 MG
     Route: 048
  2. COMBIPATCH [Suspect]
     Active Substance: ESTRADIOL\NORETHINDRONE ACETATE
     Dosage: 1 DF, EVERY 3-4 DAYS
     Route: 062
  3. COMBIPATCH [Suspect]
     Active Substance: ESTRADIOL\NORETHINDRONE ACETATE
     Indication: MENOPAUSAL SYMPTOMS
     Dosage: 1 DF, EVERY 3-4 DAYS
     Route: 062
     Dates: start: 20200921

REACTIONS (4)
  - Device placement issue [Recovered/Resolved]
  - Product adhesion issue [Not Recovered/Not Resolved]
  - Device adhesion issue [Not Recovered/Not Resolved]
  - Intentional product use issue [Unknown]

NARRATIVE: CASE EVENT DATE: 202009
